FAERS Safety Report 8009155-3 (Version None)
Quarter: 2011Q4

REPORT INFORMATION
  Report Type: 
  Country: None (occurrence: None)
  Receive Date: 20111227
  Receipt Date: 20111215
  Transmission Date: 20120403
  Serious: Yes (Other)
  Sender: FDA-Public Use
  Company Number: PHEH2009US07671

PATIENT
  Sex: Female

DRUGS (12)
  1. ARIMIDEX [Concomitant]
  2. SYNTHROID [Concomitant]
  3. CYCLOSPORINE [Concomitant]
     Dosage: 150 MG, BID
  4. PREMPRO [Concomitant]
     Dosage: 1 DF,
  5. ZOMETA [Suspect]
     Dosage: 4 MG
     Route: 042
  6. FOSAMAX [Suspect]
  7. PERIDEX [Concomitant]
  8. FLONASE [Concomitant]
  9. COUMADIN [Concomitant]
     Dosage: 2 MG, QD
     Route: 048
  10. DAPSONE [Concomitant]
     Dosage: 100 MG,
  11. AREDIA [Suspect]
  12. TYLOX [Concomitant]

REACTIONS (32)
  - PHARYNGOESOPHAGEAL DIVERTICULUM [None]
  - LYMPHOMA [None]
  - UPPER RESPIRATORY TRACT INFECTION [None]
  - OSTEONECROSIS OF JAW [None]
  - ANHEDONIA [None]
  - UTERINE LEIOMYOMA [None]
  - SPINAL COMPRESSION FRACTURE [None]
  - SCOLIOSIS [None]
  - HERNIA [None]
  - SPINAL COLUMN STENOSIS [None]
  - LUNG NEOPLASM [None]
  - DYSPNOEA [None]
  - MULTIPLE MYELOMA [None]
  - PATHOLOGICAL FRACTURE [None]
  - NEOPLASM MALIGNANT [None]
  - ARTERIOSCLEROSIS [None]
  - INFLUENZA [None]
  - FALL [None]
  - BREAST CANCER [None]
  - GRAFT VERSUS HOST DISEASE [None]
  - OESOPHAGEAL DILATATION [None]
  - GASTRIC ULCER [None]
  - GENERAL PHYSICAL HEALTH DETERIORATION [None]
  - PAIN [None]
  - ANXIETY [None]
  - SWELLING FACE [None]
  - SPINAL OSTEOARTHRITIS [None]
  - FOOT FRACTURE [None]
  - DISABILITY [None]
  - BONE DENSITY DECREASED [None]
  - DYSPHAGIA [None]
  - RASH [None]
